FAERS Safety Report 4740698-1 (Version None)
Quarter: 2005Q3

REPORT INFORMATION
  Report Type: 
  Country: None (occurrence: None)
  Receive Date: 20050810
  Receipt Date: 20050808
  Transmission Date: 20060218
  Serious: Yes (Hospitalization, Other)
  Sender: FDA-Public Use
  Company Number: 2005-04-1976

PATIENT
  Age: 43 Year
  Sex: Female

DRUGS (5)
  1. THORAZINE [Suspect]
     Route: 048
  2. PEG-INTRON [Suspect]
     Indication: HEPATITIS C
     Route: 058
     Dates: start: 20050302
  3. RIBAVIRIN [Suspect]
     Indication: HEPATITIS C
     Route: 048
     Dates: start: 20050302
  4. ASPIRIN [Concomitant]
     Dosage: 81MG UNKNOWN
     Route: 048
  5. DIAZEPAM [Concomitant]
     Dosage: 5MG UNKNOWN
     Route: 048

REACTIONS (3)
  - ACCIDENTAL OVERDOSE [None]
  - ALCOHOL PROBLEM [None]
  - SUICIDAL IDEATION [None]
